FAERS Safety Report 12176983 (Version 1)
Quarter: 2016Q1

REPORT INFORMATION
  Report Type: Report from Study
  Country: NG (occurrence: NG)
  Receive Date: 20160314
  Receipt Date: 20160314
  Transmission Date: 20160526
  Serious: Yes (Other)
  Sender: FDA-Public Use
  Company Number: PHHY2016NG030309

PATIENT
  Age: 61 Year
  Sex: Female

DRUGS (1)
  1. GLIVEC [Suspect]
     Active Substance: IMATINIB MESYLATE
     Indication: CHRONIC MYELOID LEUKAEMIA
     Dosage: 400 MG, UNK
     Route: 065
     Dates: start: 20131212

REACTIONS (5)
  - Chronic myeloid leukaemia transformation [Recovering/Resolving]
  - Chronic myeloid leukaemia [Recovering/Resolving]
  - Drug ineffective [Recovering/Resolving]
  - Quadriparesis [Recovering/Resolving]
  - Axonal neuropathy [Recovering/Resolving]

NARRATIVE: CASE EVENT DATE: 201512
